FAERS Safety Report 6117547-2 (Version None)
Quarter: 2009Q1

REPORT INFORMATION
  Report Type: 
  Country: None (occurrence: None)
  Receive Date: 20090314
  Receipt Date: 20090119
  Transmission Date: 20090719
  Serious: No
  Sender: FDA-Public Use
  Company Number: US-ABBOTT-09P-163-0498780-00

PATIENT
  Sex: Female
  Weight: 69.462 kg

DRUGS (6)
  1. HUMIRA [Suspect]
     Indication: RHEUMATOID ARTHRITIS
     Route: 058
     Dates: start: 20040801
  2. DARVOCET [Concomitant]
     Indication: PAIN
     Dosage: UNKNOWN
  3. DARVOCET [Concomitant]
  4. FOLIC ACID [Concomitant]
     Indication: DRUG USE FOR UNKNOWN INDICATION
     Dosage: UNKNOWN
  5. AMITRIPTYLINE [Concomitant]
     Indication: PAIN
     Dosage: 50 MG DAILY AS NEEDED
     Route: 048
  6. AMITRIPTYLINE [Concomitant]
     Indication: INSOMNIA

REACTIONS (2)
  - INJECTION SITE HAEMORRHAGE [None]
  - NASOPHARYNGITIS [None]
